FAERS Safety Report 21169608 (Version 1)
Quarter: 2022Q3

REPORT INFORMATION
  Report Type: Spontaneous
  Country: US (occurrence: US)
  Receive Date: 20220804
  Receipt Date: 20220804
  Transmission Date: 20221026
  Serious: Yes (Other)
  Sender: FDA-Public Use
  Company Number: US-OCTA-LIT03221US

PATIENT
  Sex: Male

DRUGS (1)
  1. ALBUMIN HUMAN [Suspect]
     Active Substance: ALBUMIN HUMAN
     Indication: Hepatic cirrhosis
     Dosage: DAILY INFUSIONS
     Route: 042

REACTIONS (2)
  - Pulmonary oedema [Recovering/Resolving]
  - Hypervolaemia [Recovering/Resolving]
